FAERS Safety Report 19097854 (Version 1)
Quarter: 2021Q2

REPORT INFORMATION
  Report Type: Spontaneous
  Country: US (occurrence: US)
  Receive Date: 20210406
  Receipt Date: 20210406
  Transmission Date: 20210717
  Serious: Yes (Hospitalization)
  Sender: FDA-Public Use
  Company Number: None

PATIENT
  Age: 59 Year
  Sex: Male

DRUGS (22)
  1. SUCRALFATE. [Concomitant]
     Active Substance: SUCRALFATE
     Dates: start: 20210403
  2. GABAPENTIN. [Concomitant]
     Active Substance: GABAPENTIN
     Dates: start: 20210330
  3. LISINOPRIL. [Concomitant]
     Active Substance: LISINOPRIL
     Dates: start: 20210404
  4. ONDANSETRON [Concomitant]
     Active Substance: ONDANSETRON
     Dates: start: 20210403
  5. EZETIMIBE. [Concomitant]
     Active Substance: EZETIMIBE
     Dates: start: 20210329
  6. CLOPIDOGREL [Concomitant]
     Active Substance: CLOPIDOGREL BISULFATE
     Dates: start: 20201229
  7. PANTOPRAZOLE [Concomitant]
     Active Substance: PANTOPRAZOLE
     Dates: start: 20210319
  8. SUCRALFATE. [Concomitant]
     Active Substance: SUCRALFATE
     Dates: start: 20210328
  9. EZETIMIBE. [Concomitant]
     Active Substance: EZETIMIBE
     Dates: start: 20210301
  10. EZETIMIBE. [Concomitant]
     Active Substance: EZETIMIBE
     Dates: start: 20210330
  11. ESOMEPRA [Concomitant]
     Active Substance: ESOMEPRAZOLE
     Dates: start: 20210226
  12. REPATHA [Suspect]
     Active Substance: EVOLOCUMAB
     Indication: BONE DISORDER
     Dosage: ?          OTHER FREQUENCY:EVERY 2 WEEKS;?
     Route: 058
     Dates: start: 20201102
  13. LISINOPRIL. [Concomitant]
     Active Substance: LISINOPRIL
     Dates: start: 20210403
  14. ESOMEPRA [Concomitant]
     Active Substance: ESOMEPRAZOLE
     Dates: start: 20210328
  15. SUCRALFATE. [Concomitant]
     Active Substance: SUCRALFATE
     Dates: start: 20210226
  16. LISINOPRIL. [Concomitant]
     Active Substance: LISINOPRIL
     Dates: start: 20210311
  17. HYDROCO/APAP [Concomitant]
     Active Substance: ACETAMINOPHEN\HYDROCODONE
     Dates: start: 20210403
  18. METOPROLOL TARTRATE. [Concomitant]
     Active Substance: METOPROLOL TARTRATE
     Dates: start: 20210329
  19. LISINOPRIL. [Concomitant]
     Active Substance: LISINOPRIL
     Dates: start: 20210329
  20. COLCHICINE. [Concomitant]
     Active Substance: COLCHICINE
     Dates: start: 20210301
  21. DULOXETINE. [Concomitant]
     Active Substance: DULOXETINE
     Dates: start: 20210211
  22. ISOSORB [Concomitant]
     Dates: start: 20210311

REACTIONS (3)
  - Therapy interrupted [None]
  - Rhinorrhoea [None]
  - Myocardial infarction [None]

NARRATIVE: CASE EVENT DATE: 20210405
